FAERS Safety Report 9404368 (Version 1)
Quarter: 2013Q3

REPORT INFORMATION
  Report Type: Spontaneous
  Country: US (occurrence: None)
  Receive Date: 20130711
  Receipt Date: 20130711
  Transmission Date: 20140515
  Serious: No
  Sender: FDA-Public Use
  Company Number: OPCR20130287

PATIENT
  Age: 53 Year
  Sex: Male
  Weight: 72.58 kg

DRUGS (4)
  1. OPANA ER 20MG [Suspect]
     Indication: PAIN
     Route: 048
  2. OXYCODONE HCL (OXYCODONE) (TABLETS) (OXYCODONE) [Concomitant]
  3. LIDODERM (POULTICE OR PATCH) [Concomitant]
  4. NEURONTIN (GABAPENTIN) (UNKNOWN) (GABAPENTIN) [Concomitant]

REACTIONS (6)
  - Foreign body [None]
  - Cough [None]
  - Vomiting [None]
  - Dysphagia [None]
  - Drug effect decreased [None]
  - Product physical issue [None]
